FAERS Safety Report 17555717 (Version 3)
Quarter: 2020Q1

REPORT INFORMATION
  Report Type: Spontaneous
  Country: JP (occurrence: JP)
  Receive Date: 20200318
  Receipt Date: 20200325
  Transmission Date: 20200409
  Serious: Yes (Other)
  Sender: FDA-Public Use
  Company Number: JP-PFIZER INC-2020113592

PATIENT
  Age: 79 Year
  Sex: Male

DRUGS (1)
  1. CEFTRIAXONE SODIUM. [Suspect]
     Active Substance: CEFTRIAXONE SODIUM
     Dosage: 1 G, 2X/DAY
     Route: 042
     Dates: end: 20200312

REACTIONS (5)
  - Cholelithiasis [Unknown]
  - C-reactive protein abnormal [Recovering/Resolving]
  - Hepatic function abnormal [Unknown]
  - Blood bilirubin increased [Recovering/Resolving]
  - Cholecystitis [Unknown]

NARRATIVE: CASE EVENT DATE: 20200312
